FAERS Safety Report 7206604-5 (Version None)
Quarter: 2011Q1

REPORT INFORMATION
  Report Type: 
  Country: None (occurrence: None)
  Receive Date: 20110103
  Receipt Date: 20101228
  Transmission Date: 20110831
  Serious: Yes (Other)
  Sender: FDA-Public Use
  Company Number: US-JNJFOC-20101208955

PATIENT
  Sex: Female
  Weight: 58.97 kg

DRUGS (8)
  1. DURAGESIC-50 [Suspect]
     Indication: FOOT DEFORMITY
     Route: 062
  2. UNKNOWN MEDICATION [Concomitant]
     Indication: SINUS DISORDER
     Route: 065
  3. MOTRIN [Concomitant]
     Indication: PAIN
     Route: 048
  4. VICODIN [Concomitant]
     Indication: PAIN
     Route: 048
  5. LIDODERM [Concomitant]
     Indication: PAIN IN EXTREMITY
     Route: 062
  6. NEURONTIN [Concomitant]
     Indication: NEUROPATHY PERIPHERAL
     Route: 048
  7. PROZAC [Concomitant]
     Indication: DEPRESSION
     Route: 048
  8. DURAGESIC-50 [Suspect]
     Indication: FOOT AMPUTATION
     Route: 062

REACTIONS (5)
  - SKIN DISCOLOURATION [None]
  - WRONG TECHNIQUE IN DRUG USAGE PROCESS [None]
  - PRODUCT ADHESION ISSUE [None]
  - PERIPHERAL COLDNESS [None]
  - PRODUCT QUALITY ISSUE [None]
